FAERS Safety Report 19251137 (Version 2)
Quarter: 2021Q2

REPORT INFORMATION
  Report Type: Report from Study
  Country: US (occurrence: US)
  Receive Date: 20210512
  Receipt Date: 20210616
  Transmission Date: 20210717
  Serious: Yes (Other)
  Sender: FDA-Public Use
  Company Number: US-EXELIXIS-CABO-21040196

PATIENT
  Age: 30 Year
  Sex: Male
  Weight: 56 kg

DRUGS (8)
  1. CABOMETYX [Suspect]
     Active Substance: CABOZANTINIB S-MALATE
     Indication: MALIGNANT CONNECTIVE TISSUE NEOPLASM
     Dosage: 20 MG
     Route: 048
  2. LACTULOSE. [Concomitant]
     Active Substance: LACTULOSE
  3. ZOFRAN [Concomitant]
     Active Substance: ONDANSETRON HYDROCHLORIDE
  4. CABOMETYX [Suspect]
     Active Substance: CABOZANTINIB S-MALATE
     Indication: SOFT TISSUE SARCOMA
  5. DILAUDID [Concomitant]
     Active Substance: HYDROMORPHONE HYDROCHLORIDE
  6. CABOMETYX [Suspect]
     Active Substance: CABOZANTINIB S-MALATE
     Indication: GASTROINTESTINAL STROMAL TUMOUR
     Dosage: 60 MG, QD
     Route: 048
     Dates: start: 20210419
  7. DOCUSATE CALCIUM. [Concomitant]
     Active Substance: DOCUSATE CALCIUM
  8. IBUPROFEN. [Concomitant]
     Active Substance: IBUPROFEN

REACTIONS (4)
  - Gastric neoplasm [Not Recovered/Not Resolved]
  - Off label use [Unknown]
  - Burns third degree [Not Recovered/Not Resolved]
  - Hypoaesthesia [Not Recovered/Not Resolved]

NARRATIVE: CASE EVENT DATE: 20210505
